FAERS Safety Report 8621935-X (Version None)
Quarter: 2012Q3

REPORT INFORMATION
  Report Type: 
  Country: None (occurrence: None)
  Receive Date: 20120822
  Receipt Date: 20120822
  Transmission Date: 20120928
  Serious: Yes (Life-Threatening)
  Sender: FDA-Public Use
  Company Number: None

PATIENT
  Age: 29 Year
  Sex: Female
  Weight: 62.5964 kg

DRUGS (1)
  1. CLARAVIS [Suspect]
     Indication: ACNE
     Dosage: 40 BID PO
     Route: 048
     Dates: start: 20120320, end: 20120819

REACTIONS (1)
  - PULMONARY EMBOLISM [None]
